FAERS Safety Report 13581610 (Version 1)
Quarter: 2017Q2

REPORT INFORMATION
  Report Type: Spontaneous
  Country: US (occurrence: US)
  Receive Date: 20170525
  Receipt Date: 20170525
  Transmission Date: 20170830
  Serious: Yes (Other)
  Sender: FDA-Public Use
  Company Number: US-EMD SERONO-8158318

PATIENT
  Age: 43 Year
  Sex: Female
  Weight: 93 kg

DRUGS (18)
  1. RHEUMATREX [Concomitant]
     Active Substance: METHOTREXATE SODIUM
     Indication: CHRONIC SPONTANEOUS URTICARIA
     Dosage: TOOK SIX TABLETS BY MOUTH ONCE EVERY WEEK
     Route: 048
  2. ZOLOFT [Concomitant]
     Active Substance: SERTRALINE HYDROCHLORIDE
     Indication: PRODUCT USED FOR UNKNOWN INDICATION
     Route: 048
  3. CYMBALTA [Concomitant]
     Active Substance: DULOXETINE HYDROCHLORIDE
     Indication: CYSTITIS INTERSTITIAL
     Dosage: CONTROLLED RELEASE CAPSULE
     Route: 048
  4. ATARAX [Concomitant]
     Active Substance: HYDROXYZINE HYDROCHLORIDE
     Indication: CHRONIC SPONTANEOUS URTICARIA
     Dosage: AS NEEDED
     Route: 048
  5. SYNTHROID [Concomitant]
     Active Substance: LEVOTHYROXINE SODIUM
     Route: 048
  6. CYCLOSPORINE. [Concomitant]
     Active Substance: CYCLOSPORINE
     Indication: CHRONIC SPONTANEOUS URTICARIA
  7. SAIZEN [Suspect]
     Active Substance: SOMATROPIN
     Indication: GROWTH HORMONE DEFICIENCY
     Route: 058
     Dates: start: 201207
  8. AFRIN [Concomitant]
     Active Substance: OXYMETAZOLINE
     Indication: PRODUCT USED FOR UNKNOWN INDICATION
     Dosage: NASAL AERO SPRAY, INHALE 2 SPRAYS IN NOSE DAILY AT BEDTIME.
     Route: 045
  9. KLONOPIN [Concomitant]
     Active Substance: CLONAZEPAM
     Indication: PRODUCT USED FOR UNKNOWN INDICATION
     Dosage: 3 TABLET AT BEDTIME IF NEEDED
     Route: 048
  10. ZANTAC [Concomitant]
     Active Substance: RANITIDINE HYDROCHLORIDE
     Indication: CHRONIC SPONTANEOUS URTICARIA
     Route: 048
  11. DEPLIN [Concomitant]
     Active Substance: LEVOMEFOLATE CALCIUM
     Indication: PRODUCT USED FOR UNKNOWN INDICATION
     Route: 048
  12. SAIZEN [Suspect]
     Active Substance: SOMATROPIN
     Route: 058
     Dates: start: 201212
  13. SYNTHROID [Concomitant]
     Active Substance: LEVOTHYROXINE SODIUM
     Indication: PRIMARY HYPOTHYROIDISM
     Route: 048
  14. ZYRTEC [Concomitant]
     Active Substance: CETIRIZINE HYDROCHLORIDE
     Indication: CHRONIC SPONTANEOUS URTICARIA
     Route: 048
  15. FOLIC ACID. [Concomitant]
     Active Substance: FOLIC ACID
     Indication: PRODUCT USED FOR UNKNOWN INDICATION
  16. PRILOSEC [Concomitant]
     Active Substance: OMEPRAZOLE MAGNESIUM
     Indication: PRODUCT USED FOR UNKNOWN INDICATION
     Dosage: ORAL DELAYED RELEASE CAPSULE
     Route: 048
  17. LITHOBID [Concomitant]
     Active Substance: LITHIUM CARBONATE
     Indication: PRODUCT USED FOR UNKNOWN INDICATION
     Dosage: ORAL SUSTAINED RELEASE TABLET
     Route: 048
  18. LIPITOR [Concomitant]
     Active Substance: ATORVASTATIN CALCIUM
     Indication: PRODUCT USED FOR UNKNOWN INDICATION
     Route: 048

REACTIONS (23)
  - Weight increased [Unknown]
  - Libido decreased [Unknown]
  - Diabetes mellitus [Unknown]
  - Anxiety [Unknown]
  - Lipohypertrophy [Unknown]
  - Seborrhoea [Unknown]
  - Skin striae [Unknown]
  - Menstruation irregular [Unknown]
  - Menometrorrhagia [Unknown]
  - Hypertension [Unknown]
  - Menopause [Unknown]
  - Hot flush [Unknown]
  - Insomnia [Unknown]
  - Bone density abnormal [Unknown]
  - Depression [Unknown]
  - Tension headache [Unknown]
  - Cushingoid [Unknown]
  - Mood swings [Unknown]
  - Hirsutism [Unknown]
  - Fat tissue increased [Unknown]
  - Affect lability [Unknown]
  - Cushing^s syndrome [Unknown]
  - Night sweats [Unknown]

NARRATIVE: CASE EVENT DATE: 20121103
